FAERS Safety Report 6338820-9 (Version None)
Quarter: 2009Q3

REPORT INFORMATION
  Report Type: 
  Country: None (occurrence: None)
  Receive Date: 20090903
  Receipt Date: 20090827
  Transmission Date: 20100115
  Serious: Yes (Other)
  Sender: FDA-Public Use
  Company Number: US-JNJFOC-20090900356

PATIENT
  Sex: Female

DRUGS (4)
  1. MONISTAT 1 UNSPECIFIED [Suspect]
     Route: 067
  2. MONISTAT 1 UNSPECIFIED [Suspect]
     Indication: FUNGAL INFECTION
     Route: 067
  3. MONISTAT 1 UNSPECIFIED [Suspect]
  4. MONISTAT 1 UNSPECIFIED [Suspect]

REACTIONS (4)
  - ARTHRALGIA [None]
  - JOINT STIFFNESS [None]
  - JOINT SWELLING [None]
  - PRURITUS GENERALISED [None]
